FAERS Safety Report 7770360-2 (Version None)
Quarter: 2011Q3

REPORT INFORMATION
  Report Type: 
  Country: None (occurrence: None)
  Receive Date: 20110922
  Receipt Date: 20100816
  Transmission Date: 20111222
  Serious: Yes (Other)
  Sender: FDA-Public Use
  Company Number: US-ASTRAZENECA-2008UW13730

PATIENT
  Age: 452 Month
  Sex: Male
  Weight: 109.8 kg

DRUGS (27)
  1. SEROQUEL [Suspect]
     Dosage: 50 MG - 600 MG
     Route: 048
     Dates: start: 20050114
  2. SEROQUEL [Suspect]
     Dosage: 100-200MG/DAY
     Route: 048
     Dates: start: 20070122, end: 20070206
  3. CELEXA [Concomitant]
     Dosage: 10 MG - 40 MG
     Route: 048
     Dates: start: 20050517
  4. LOVASTATIN [Concomitant]
     Route: 048
     Dates: start: 20070718
  5. SEROQUEL [Suspect]
     Route: 048
     Dates: start: 20040916, end: 20041215
  6. SEROQUEL [Suspect]
     Route: 048
     Dates: start: 20050114, end: 20070119
  7. ATIVAN [Concomitant]
     Route: 048
     Dates: start: 20050517
  8. PAXIL [Concomitant]
     Dosage: 20 MG - 30 MG
     Route: 048
     Dates: start: 20031217
  9. SEROQUEL [Suspect]
     Dosage: 50 MG - 600 MG
     Route: 048
     Dates: start: 20050114
  10. RISPERDAL [Concomitant]
     Indication: SCHIZOAFFECTIVE DISORDER
     Dates: start: 20070810, end: 20080228
  11. ABILIFY [Concomitant]
     Dates: start: 20090101
  12. THORAZINE [Concomitant]
     Dates: start: 20090101
  13. SEROQUEL [Suspect]
     Indication: SLEEP DISORDER
     Dosage: 100-800 MG/DAY
     Route: 048
     Dates: start: 20040916, end: 20070101
  14. ASPIRIN [Concomitant]
     Route: 048
     Dates: start: 20050517
  15. PRILOSEC [Concomitant]
     Route: 048
     Dates: start: 20050519
  16. CLONAZEPAM [Concomitant]
     Dosage: 0.5 MG - 3 MG
     Route: 048
     Dates: start: 20070202
  17. SEROQUEL [Suspect]
     Indication: SCHIZOAFFECTIVE DISORDER
     Dosage: 100-800 MG/DAY
     Route: 048
     Dates: start: 20040916, end: 20070101
  18. SEROQUEL [Suspect]
     Dosage: 100-200MG/DAY
     Route: 048
     Dates: start: 20070122, end: 20070206
  19. SEROQUEL [Suspect]
     Route: 048
     Dates: start: 20040916, end: 20041215
  20. SEROQUEL [Suspect]
     Route: 048
     Dates: start: 20050114, end: 20070119
  21. TEGRETOL [Concomitant]
     Dosage: 200 MG - 400 MG
     Route: 048
     Dates: start: 20040101
  22. HYDROXYZINE HYDROCHLORIDE [Concomitant]
     Indication: AGITATION
     Dosage: 10 MG/ 5 ML, 50 MG EVERY EIGHT HOURS
     Dates: start: 20070202
  23. HYDROXYZINE HYDROCHLORIDE [Concomitant]
     Indication: INSOMNIA
     Dosage: 10 MG/ 5 ML, 50 MG EVERY EIGHT HOURS
     Dates: start: 20070202
  24. HALDOL [Concomitant]
  25. RISPERDAL [Concomitant]
     Dosage: 1-3 MG
     Dates: start: 20040201, end: 20080201
  26. DESYREL [Concomitant]
     Route: 048
     Dates: start: 20031217
  27. THORAZINE [Concomitant]
     Dates: start: 19930101, end: 19940101

REACTIONS (3)
  - BACK PAIN [None]
  - DIABETES MELLITUS INADEQUATE CONTROL [None]
  - TYPE 2 DIABETES MELLITUS [None]
